FAERS Safety Report 17185034 (Version 3)
Quarter: 2020Q3

REPORT INFORMATION
  Report Type: Report from Study
  Country: TW (occurrence: TW)
  Receive Date: 20191220
  Receipt Date: 20200130
  Transmission Date: 20201105
  Serious: Yes (Hospitalization)
  Sender: FDA-Public Use
  Company Number: TW-ALEXION PHARMACEUTICALS INC.-A201915894

PATIENT
  Age: 24 Year
  Sex: Male
  Weight: 66 kg

DRUGS (30)
  1. LEVOCETIRIZINE [Concomitant]
     Active Substance: LEVOCETIRIZINE
     Indication: UPPER RESPIRATORY TRACT INFECTION
     Dosage: 5 MG, QHS
     Route: 048
     Dates: start: 20180221
  2. ZALAIN [Concomitant]
     Active Substance: SERTACONAZOLE NITRATE
     Indication: BODY TINEA
     Dosage: UNK UNK, BID
     Route: 061
     Dates: start: 20190604
  3. ACETAMINOPHEN. [Concomitant]
     Active Substance: ACETAMINOPHEN
     Indication: GONOCOCCAL INFECTION
     Dosage: 500 MG, QID (PRN)
     Route: 048
     Dates: start: 20190929, end: 20191007
  4. ACETAMINOPHEN. [Concomitant]
     Active Substance: ACETAMINOPHEN
     Indication: HEADACHE
     Dosage: 500 MG, QID
     Route: 048
     Dates: start: 20191007, end: 20191012
  5. AZITHROMYCIN DIHYDRATE. [Concomitant]
     Active Substance: AZITHROMYCIN DIHYDRATE
     Indication: GONOCOCCAL INFECTION
     Dosage: 1000 MG, SINGLE
     Route: 048
     Dates: start: 20190930, end: 20190930
  6. RAVULIZUMAB. [Suspect]
     Active Substance: RAVULIZUMAB
     Dosage: 3300 MG, UNK
     Route: 042
     Dates: start: 20191119
  7. METOCLOPRAMIDE HCL [Concomitant]
     Active Substance: METOCLOPRAMIDE HYDROCHLORIDE
     Dosage: 5 MG, TID
     Route: 048
     Dates: start: 20190926, end: 20190929
  8. SODIUM CHLORIDE. [Concomitant]
     Active Substance: SODIUM CHLORIDE
     Indication: SUPPLEMENTATION THERAPY
     Dosage: 500 ML, SINGLE
     Route: 042
     Dates: start: 20190926, end: 20190927
  9. LACTATED RINGERS SOLUTION [Concomitant]
     Active Substance: CALCIUM CHLORIDE\POTASSIUM CHLORIDE\SODIUM CHLORIDE\SODIUM LACTATE
     Indication: HEADACHE
     Dosage: 1000 ML, QD
     Route: 042
     Dates: start: 20190930, end: 20191004
  10. ESOMEPRAZOLE MAGNESIUM. [Concomitant]
     Active Substance: ESOMEPRAZOLE MAGNESIUM
     Indication: ABDOMINAL PAIN UPPER
     Dosage: 40 MG, SINGLE
     Route: 048
     Dates: start: 20191003, end: 20191003
  11. RAVULIZUMAB. [Suspect]
     Active Substance: RAVULIZUMAB
     Dosage: 3300 MG, UNK
     Route: 042
     Dates: start: 20190924
  12. ACETEIN                            /00082801/ [Concomitant]
     Indication: UPPER RESPIRATORY TRACT INFECTION
     Dosage: 600 MG, BID
     Route: 048
     Dates: start: 20180223
  13. FAMOTIDINE. [Concomitant]
     Active Substance: FAMOTIDINE
     Indication: ABDOMINAL PAIN UPPER
     Dosage: 20 MG, SINGLE
     Route: 048
     Dates: start: 20191001, end: 20191001
  14. METOCLOPRAMIDE HCL [Concomitant]
     Active Substance: METOCLOPRAMIDE HYDROCHLORIDE
     Indication: NEISSERIA INFECTION
     Dosage: 10 MG, SINGLE
     Route: 042
     Dates: start: 20190926, end: 20190926
  15. ACETAMINOPHEN. [Concomitant]
     Active Substance: ACETAMINOPHEN
     Indication: PROPHYLAXIS
     Dosage: 500 MG, PRN
     Route: 048
     Dates: start: 20191023, end: 20191106
  16. LACTATED RINGERS SOLUTION [Concomitant]
     Active Substance: CALCIUM CHLORIDE\POTASSIUM CHLORIDE\SODIUM CHLORIDE\SODIUM LACTATE
     Indication: SUPPLEMENTATION THERAPY
     Dosage: 500 ML, BID
     Route: 042
     Dates: start: 20190929, end: 20190929
  17. DEXAMETHASONE W/NEOMYCIN [Concomitant]
     Active Substance: DEXAMETHASONE\NEOMYCIN
     Dosage: UNK MG, QID
     Route: 047
     Dates: start: 20161025
  18. BETAMETHASONE W/NEOMYCIN [Concomitant]
     Indication: HORDEOLUM
     Dosage: UNK MG, UNK (BEFORE SLEEP)
     Route: 047
     Dates: start: 20160622
  19. CEFTRIAXONE SODIUM. [Concomitant]
     Active Substance: CEFTRIAXONE SODIUM
     Dosage: 2000 MG, BID
     Route: 042
     Dates: start: 20191013, end: 20191022
  20. STROCAIN                           /00130301/ [Concomitant]
     Indication: ABDOMINAL PAIN UPPER
     Dosage: 1 DF, SINGLE
     Route: 048
     Dates: start: 20191003, end: 20191003
  21. LYSINE ACETYLSALICYLIC [Concomitant]
     Active Substance: ASPIRIN DL-LYSINE
     Indication: GONOCOCCAL INFECTION
     Dosage: 0.5 G, SINGLE
     Route: 042
     Dates: start: 20190926, end: 20190926
  22. DOXYCYCLINE HCL [Concomitant]
     Active Substance: DOXYCYCLINE HYDROCHLORIDE
     Indication: BACTERAEMIA
     Dosage: 100 MG, BID
     Route: 048
     Dates: start: 20191013, end: 20191022
  23. RAVULIZUMAB. [Suspect]
     Active Substance: RAVULIZUMAB
     Indication: PAROXYSMAL NOCTURNAL HAEMOGLOBINURIA
     Dosage: 1600 MG, UNK
     Route: 042
     Dates: start: 20160412
  24. BETAMETHASONE W/NEOMYCIN [Concomitant]
     Dosage: UNK MG, UNK
     Route: 047
     Dates: start: 20161025
  25. CEFTRIAXONE SODIUM. [Concomitant]
     Active Substance: CEFTRIAXONE SODIUM
     Indication: GONOCOCCAL INFECTION
     Dosage: 2000 MG, Q12H
     Route: 042
     Dates: start: 20190928, end: 20191007
  26. STROCAIN                           /00130301/ [Concomitant]
     Indication: ABDOMINAL PAIN UPPER
  27. DEXAMETHASONE W/NEOMYCIN [Concomitant]
     Active Substance: DEXAMETHASONE\NEOMYCIN
     Indication: HORDEOLUM
     Dosage: UNK MG, QID
     Route: 047
     Dates: start: 20160622
  28. AUGMENTIN [Concomitant]
     Active Substance: AMOXICILLIN\CLAVULANATE POTASSIUM
     Indication: GONOCOCCAL INFECTION
     Dosage: 1 G, BID
     Route: 048
     Dates: start: 20190926, end: 20190929
  29. DOXYCYCLINE HCL [Concomitant]
     Active Substance: DOXYCYCLINE HYDROCHLORIDE
     Indication: BACTERAEMIA
     Dosage: 100 MG, BID
     Route: 048
     Dates: start: 20190929, end: 20190930
  30. CEFTIBUTEN. [Concomitant]
     Active Substance: CEFTIBUTEN
     Indication: GONOCOCCAL INFECTION
     Dosage: 200 MG, BID
     Route: 048
     Dates: start: 20191007, end: 20191012

REACTIONS (1)
  - Haemolysis [Recovered/Resolved]

NARRATIVE: CASE EVENT DATE: 20191013
